FAERS Safety Report 23872976 (Version 1)
Quarter: 2024Q2

REPORT INFORMATION
  Report Type: Spontaneous
  Country: JP (occurrence: JP)
  Receive Date: 20240520
  Receipt Date: 20240520
  Transmission Date: 20240716
  Serious: Yes (Death, Hospitalization, Other)
  Sender: FDA-Public Use
  Company Number: JP-GILEAD-2024-0672824

PATIENT
  Age: 85 Year
  Sex: Male

DRUGS (2)
  1. VEKLURY [Suspect]
     Active Substance: REMDESIVIR
     Indication: COVID-19
     Dosage: UNK
     Route: 065
  2. METHYLPREDNISOLONE [Concomitant]
     Active Substance: METHYLPREDNISOLONE
     Dosage: 80 MG

REACTIONS (4)
  - Death [Fatal]
  - Neuroendocrine carcinoma of the skin [Unknown]
  - Neuroendocrine carcinoma of the skin [Unknown]
  - Metastases to lymph nodes [Unknown]
